FAERS Safety Report 8616073-6 (Version None)
Quarter: 2012Q3

REPORT INFORMATION
  Report Type: 
  Country: None (occurrence: None)
  Receive Date: 20120823
  Receipt Date: 20110927
  Transmission Date: 20120928
  Serious: Yes (Hospitalization)
  Sender: FDA-Public Use
  Company Number: FR-ROCHE-1000054

PATIENT
  Age: 61 Year
  Sex: Female

DRUGS (3)
  1. HERCEPTIN [Suspect]
     Indication: BREAST CANCER METASTATIC
     Route: 042
  2. LAPATINIB [Suspect]
     Indication: BREAST CANCER METASTATIC
     Route: 048
     Dates: end: 20110806
  3. FEMARA [Suspect]
     Indication: BREAST CANCER METASTATIC
     Route: 048

REACTIONS (2)
  - HEPATITIS CHOLESTATIC [None]
  - JAUNDICE [None]
